FAERS Safety Report 21723497 (Version 1)
Quarter: 2022Q4

REPORT INFORMATION
  Report Type: Spontaneous
  Country: US (occurrence: US)
  Receive Date: 20221213
  Receipt Date: 20221213
  Transmission Date: 20230112
  Serious: No
  Sender: FDA-Public Use
  Company Number: US-JNJFOC-20221163485

PATIENT
  Age: 57 Year
  Sex: Female

DRUGS (1)
  1. WOMENS ROGAINE UNSCENTED [Suspect]
     Active Substance: MINOXIDIL
     Indication: Alopecia
     Dosage: 2 ML (JUST A STRIPE DOWN THE FINGER, SQUEEZED A THIN LINE DOWN THE FINGER -THREE INCHES OR TWO)
     Route: 061
     Dates: start: 20221124

REACTIONS (2)
  - Application site pain [Not Recovered/Not Resolved]
  - Incorrect dose administered [Unknown]

NARRATIVE: CASE EVENT DATE: 20221124
